FAERS Safety Report 6712285-7 (Version None)
Quarter: 2010Q2

REPORT INFORMATION
  Report Type: 
  Country: None (occurrence: None)
  Receive Date: 20100505
  Receipt Date: 20100427
  Transmission Date: 20101027
  Serious: Yes (Death, Other)
  Sender: FDA-Public Use
  Company Number: JP-WYE-H14843310

PATIENT
  Age: 79 Year
  Sex: Male

DRUGS (1)
  1. ZOSYN [Suspect]
     Indication: PNEUMONIA
     Route: 041
     Dates: start: 20100217, end: 20100225

REACTIONS (3)
  - PNEUMONIA ASPIRATION [None]
  - PULMONARY CONGESTION [None]
  - RENAL FAILURE [None]
